FAERS Safety Report 6149558-5 (Version None)
Quarter: 2009Q2

REPORT INFORMATION
  Report Type: 
  Country: None (occurrence: None)
  Receive Date: 20090409
  Receipt Date: 20090402
  Transmission Date: 20091009
  Serious: Yes (Other)
  Sender: FDA-Public Use
  Company Number: PHHY2009JP02697

PATIENT
  Sex: Female
  Weight: 47 kg

DRUGS (12)
  1. DIOVAN [Suspect]
     Indication: HYPERTENSION
     Dosage: 80 MG, QD
     Route: 048
     Dates: start: 20071016, end: 20080613
  2. DIOVAN [Suspect]
     Dosage: 40 MG, QD
     Route: 048
     Dates: start: 20080614
  3. CONIEL [Concomitant]
     Indication: HYPERTENSION
     Dosage: 4 MG
     Route: 048
     Dates: start: 20070704, end: 20071014
  4. DIGOSIN [Concomitant]
     Dosage: 0.125 MG
     Route: 048
     Dates: start: 20021201
  5. BUFFERIN [Concomitant]
     Dosage: 81 MG
     Route: 048
     Dates: start: 20021201
  6. TROXSIN [Concomitant]
     Dosage: 300 MG
     Route: 048
     Dates: start: 20021201
  7. CLARITIN [Concomitant]
     Dosage: 10 MG
     Route: 048
     Dates: start: 20071004
  8. CINAL [Concomitant]
     Dosage: 3 DF
     Route: 048
     Dates: start: 20071004, end: 20071216
  9. BIOTIN [Concomitant]
     Dosage: 0.75G
     Route: 048
     Dates: start: 20071004, end: 20080811
  10. FLAVITAN [Concomitant]
     Dosage: 15 MG
     Route: 048
     Dates: start: 20071004, end: 20071103
  11. ZETIA [Concomitant]
     Dosage: 10 MG
     Route: 048
     Dates: start: 20071112, end: 20080526
  12. LIVALO KOWA [Concomitant]
     Dosage: 1 MG
     Route: 048
     Dates: start: 20080811

REACTIONS (2)
  - BLOOD TRIGLYCERIDES INCREASED [None]
  - DIABETIC NEPHROPATHY [None]
